FAERS Safety Report 22202420 (Version 4)
Quarter: 2023Q2

REPORT INFORMATION
  Report Type: Spontaneous
  Country: US (occurrence: US)
  Receive Date: 20230412
  Receipt Date: 20230630
  Transmission Date: 20230721
  Serious: Yes (Other)
  Sender: FDA-Public Use
  Company Number: US-PFIZER INC-PV202300066066

PATIENT
  Age: 55 Year
  Sex: Female

DRUGS (1)
  1. IBRANCE [Suspect]
     Active Substance: PALBOCICLIB
     Dosage: 125 MG

REACTIONS (6)
  - Aspiration pleural cavity [Unknown]
  - Chest discomfort [Recovered/Resolved]
  - Intentional product misuse [Unknown]
  - Weight decreased [Unknown]
  - Dyspepsia [Unknown]
  - Fatigue [Unknown]
